FAERS Safety Report 13905730 (Version 1)
Quarter: 2017Q3

REPORT INFORMATION
  Report Type: Report from Study
  Country: US (occurrence: US)
  Receive Date: 20170825
  Receipt Date: 20170825
  Transmission Date: 20171127
  Serious: Yes (Hospitalization, Other)
  Sender: FDA-Public Use
  Company Number: PHEH2017US026387

PATIENT
  Sex: Female

DRUGS (6)
  1. PREDNISONE. [Concomitant]
     Active Substance: PREDNISONE
     Dosage: 0.5 DF, QD
     Route: 065
  2. GILENYA [Suspect]
     Active Substance: FINGOLIMOD HYDROCHLORIDE
     Indication: RELAPSING-REMITTING MULTIPLE SCLEROSIS
     Route: 065
  3. PREDNISONE. [Concomitant]
     Active Substance: PREDNISONE
     Dosage: 20 MG, BID
     Route: 065
  4. PREDNISONE. [Concomitant]
     Active Substance: PREDNISONE
     Dosage: 20 MG, QD
     Route: 065
  5. LISINOPRIL. [Concomitant]
     Active Substance: LISINOPRIL
     Indication: PRODUCT USED FOR UNKNOWN INDICATION
     Dosage: 20 MG, QD
     Route: 048
     Dates: start: 20161110
  6. PREDNISONE. [Concomitant]
     Active Substance: PREDNISONE
     Indication: PRODUCT USED FOR UNKNOWN INDICATION
     Dosage: 20 MG, TID FOR 7 DAYS
     Route: 065

REACTIONS (17)
  - Coordination abnormal [Recovering/Resolving]
  - Occipital neuralgia [Unknown]
  - Pain in extremity [Unknown]
  - Decreased vibratory sense [Unknown]
  - Ataxia [Unknown]
  - Eating disorder [Unknown]
  - Central nervous system lesion [Unknown]
  - Fatigue [Unknown]
  - Constipation [Not Recovered/Not Resolved]
  - Insomnia [Unknown]
  - Hypoaesthesia [Unknown]
  - Urinary incontinence [Not Recovered/Not Resolved]
  - Tremor [Unknown]
  - Diplopia [Unknown]
  - Balance disorder [Recovering/Resolving]
  - Vision blurred [Unknown]
  - Dysmetria [Unknown]
